FAERS Safety Report 23123296 (Version 2)
Quarter: 2023Q4

REPORT INFORMATION
  Report Type: Report from Study
  Country: US (occurrence: US)
  Receive Date: 20231030
  Receipt Date: 20231117
  Transmission Date: 20240110
  Serious: Yes (Other)
  Sender: FDA-Public Use
  Company Number: US-JNJFOC-20231056675

PATIENT
  Sex: Male

DRUGS (1)
  1. SPRAVATO [Suspect]
     Active Substance: ESKETAMINE
     Indication: Product used for unknown indication
     Dosage: THE PATIENT HAD BEEN ON TWICE A WEEK TREATMENT FOR MULTIPLE WEEKS

REACTIONS (3)
  - Respiratory disorder [Unknown]
  - Drug ineffective [Unknown]
  - Condition aggravated [Unknown]
